FAERS Safety Report 6856331-9 (Version None)
Quarter: 2010Q3

REPORT INFORMATION
  Report Type: 
  Country: None (occurrence: None)
  Receive Date: 20100719
  Receipt Date: 20100709
  Transmission Date: 20110219
  Serious: Yes (Life-Threatening)
  Sender: FDA-Public Use
  Company Number: GXKR2010IT07765

PATIENT
  Sex: Male

DRUGS (2)
  1. ENALAPRIL MALEATE [Suspect]
     Route: 065
  2. FUROSEMIDE (NGX) [Interacting]
     Route: 065

REACTIONS (1)
  - HYPOVOLAEMIC SHOCK [None]
